FAERS Safety Report 25634833 (Version 1)
Quarter: 2025Q3

REPORT INFORMATION
  Report Type: Report from Study
  Country: EU (occurrence: EU)
  Receive Date: 20250801
  Receipt Date: 20250801
  Transmission Date: 20251021
  Serious: Yes (Other)
  Sender: MYLAN
  Company Number: EU-MYLANLABS-2025M1064746

PATIENT
  Age: 8 Year
  Sex: Female

DRUGS (24)
  1. LEVETIRACETAM [Suspect]
     Active Substance: LEVETIRACETAM
     Indication: Severe myoclonic epilepsy of infancy
  2. LEVETIRACETAM [Suspect]
     Active Substance: LEVETIRACETAM
     Route: 065
  3. LEVETIRACETAM [Suspect]
     Active Substance: LEVETIRACETAM
     Route: 065
  4. LEVETIRACETAM [Suspect]
     Active Substance: LEVETIRACETAM
  5. SOTICLESTAT [Suspect]
     Active Substance: SOTICLESTAT
     Indication: Severe myoclonic epilepsy of infancy
  6. SOTICLESTAT [Suspect]
     Active Substance: SOTICLESTAT
     Route: 065
  7. SOTICLESTAT [Suspect]
     Active Substance: SOTICLESTAT
     Route: 065
  8. SOTICLESTAT [Suspect]
     Active Substance: SOTICLESTAT
  9. VALPROATE [Suspect]
     Active Substance: VALPROIC ACID
     Indication: Severe myoclonic epilepsy of infancy
  10. VALPROATE [Suspect]
     Active Substance: VALPROIC ACID
     Route: 065
  11. VALPROATE [Suspect]
     Active Substance: VALPROIC ACID
     Route: 065
  12. VALPROATE [Suspect]
     Active Substance: VALPROIC ACID
  13. CLOBAZAM [Suspect]
     Active Substance: CLOBAZAM
     Indication: Severe myoclonic epilepsy of infancy
  14. CLOBAZAM [Suspect]
     Active Substance: CLOBAZAM
     Route: 065
  15. CLOBAZAM [Suspect]
     Active Substance: CLOBAZAM
     Route: 065
  16. CLOBAZAM [Suspect]
     Active Substance: CLOBAZAM
  17. FENFLURAMINE [Suspect]
     Active Substance: FENFLURAMINE
     Indication: Severe myoclonic epilepsy of infancy
  18. FENFLURAMINE [Suspect]
     Active Substance: FENFLURAMINE
     Route: 065
  19. FENFLURAMINE [Suspect]
     Active Substance: FENFLURAMINE
     Route: 065
  20. FENFLURAMINE [Suspect]
     Active Substance: FENFLURAMINE
  21. STIRIPENTOL [Suspect]
     Active Substance: STIRIPENTOL
     Indication: Severe myoclonic epilepsy of infancy
  22. STIRIPENTOL [Suspect]
     Active Substance: STIRIPENTOL
     Route: 065
  23. STIRIPENTOL [Suspect]
     Active Substance: STIRIPENTOL
     Route: 065
  24. STIRIPENTOL [Suspect]
     Active Substance: STIRIPENTOL

REACTIONS (1)
  - Drug ineffective [Unknown]
